FAERS Safety Report 6959299-X (Version None)
Quarter: 2010Q3

REPORT INFORMATION
  Report Type: 
  Country: None (occurrence: None)
  Receive Date: 20100831
  Receipt Date: 20100817
  Transmission Date: 20110219
  Serious: No
  Sender: FDA-Public Use
  Company Number: US-PFIZER INC-2010103743

PATIENT
  Sex: Male
  Weight: 73 kg

DRUGS (12)
  1. TOVIAZ [Suspect]
     Indication: POLLAKIURIA
     Dosage: 4 MG, DAILY
     Route: 048
     Dates: start: 20100101
  2. LANTUS [Concomitant]
     Indication: DIABETES MELLITUS
     Dosage: 10 UNITS, UNK
  3. JANUVIA [Concomitant]
     Indication: DIABETES MELLITUS
     Dosage: UNK
     Route: 048
  4. CALTRATE PLUS [Concomitant]
     Indication: OSTEOPOROSIS
     Dosage: DAILY, UNK
     Route: 048
  5. CARVEDILOL [Concomitant]
     Indication: CARDIAC DISORDER
     Dosage: 6.25 MG, 2X/DAY
     Route: 048
  6. KLOR-CON [Concomitant]
     Indication: OEDEMA PERIPHERAL
     Dosage: 10 MEQ, UNK
     Route: 048
  7. FUROSEMIDE [Concomitant]
     Indication: OEDEMA PERIPHERAL
     Dosage: 20 MG, 2X/DAY
     Route: 048
  8. WARFARIN SODIUM [Concomitant]
     Indication: THROMBOSIS PROPHYLAXIS
     Dosage: 5 MG, DAILY
     Route: 048
  9. ZOCOR [Concomitant]
     Indication: BLOOD CHOLESTEROL ABNORMAL
     Dosage: 20 MG, DAILY
     Route: 048
  10. LORATADINE [Concomitant]
     Indication: HYPERSENSITIVITY
     Dosage: 10 MG, UNK
     Route: 048
  11. UROXATRAL [Concomitant]
     Indication: MICTURITION DISORDER
     Dosage: 40 MG, DAILY
     Route: 048
  12. LOVAZA [Concomitant]
     Dosage: 1000 MG, UNK
     Route: 048

REACTIONS (1)
  - POLLAKIURIA [None]
